FAERS Safety Report 10144757 (Version 1)
Quarter: 2014Q2

REPORT INFORMATION
  Report Type: Spontaneous
  Country: US (occurrence: US)
  Receive Date: 20140430
  Receipt Date: 20140430
  Transmission Date: 20141212
  Serious: Yes (Death)
  Sender: FDA-Public Use
  Company Number: US-SA-2013SA126595

PATIENT
  Sex: 0

DRUGS (2)
  1. LOVENOX [Suspect]
     Route: 065
  2. WARFARIN [Suspect]
     Route: 065

REACTIONS (3)
  - Abdominal wall haematoma [Fatal]
  - International normalised ratio increased [Unknown]
  - Incorrect route of drug administration [Unknown]
